FAERS Safety Report 7301299-4 (Version None)
Quarter: 2011Q1

REPORT INFORMATION
  Report Type: 
  Country: None (occurrence: None)
  Receive Date: 20110112
  Receipt Date: 20100930
  Transmission Date: 20110831
  Serious: Yes (Other)
  Sender: FDA-Public Use
  Company Number: 2010-00990

PATIENT
  Age: 58 Year
  Sex: Male
  Weight: 58.0604 kg

DRUGS (11)
  1. CLOFAZAMINE [Concomitant]
  2. VFEND [Concomitant]
  3. SYMBICORT [Concomitant]
  4. ZEGEROD [Concomitant]
  5. ETHAMBUTOL HCL [Suspect]
     Indication: MYCOBACTERIUM AVIUM COMPLEX INFECTION
     Dosage: 1000 MG (2 AND HALF TABLETS DAILY), PER ORAL
     Route: 048
     Dates: start: 20060301, end: 20100801
  6. CIPROFLOXACIN [Concomitant]
  7. ALBUTEROL [Concomitant]
  8. RIFABUTIN [Concomitant]
  9. MYCOBUTIN [Concomitant]
  10. AMIKACIN [Concomitant]
  11. AZITHROMYCIN [Concomitant]

REACTIONS (2)
  - HYPOAESTHESIA [None]
  - PARAESTHESIA [None]
